FAERS Safety Report 9937093 (Version 2)
Quarter: 2014Q1

REPORT INFORMATION
  Report Type: Spontaneous
  Country: FR (occurrence: FR)
  Receive Date: 20140301
  Receipt Date: 20140305
  Transmission Date: 20141002
  Serious: Yes (Other)
  Sender: FDA-Public Use
  Company Number: FR-ROCHE-1357302

PATIENT
  Sex: Female

DRUGS (7)
  1. XOLAIR [Suspect]
     Indication: ASTHMA
     Route: 065
  2. XOLAIR [Suspect]
     Route: 058
     Dates: start: 2011, end: 2012
  3. XOLAIR [Suspect]
     Route: 058
     Dates: start: 201301
  4. INNOVAIR [Concomitant]
  5. AERIUS [Concomitant]
  6. SOLUPRED (FRANCE) [Concomitant]
  7. SINGULAIR [Concomitant]

REACTIONS (3)
  - Abortion spontaneous [Unknown]
  - Maternal exposure during pregnancy [Unknown]
  - Amenorrhoea [Unknown]
